FAERS Safety Report 8464897-0 (Version None)
Quarter: 2012Q2

REPORT INFORMATION
  Report Type: 
  Country: None (occurrence: None)
  Receive Date: 20120626
  Receipt Date: 20120619
  Transmission Date: 20120825
  Serious: Yes (Hospitalization, Disabling)
  Sender: FDA-Public Use
  Company Number: US-B.I. PHARMACEUTICALS,INC./RIDGEFIELD-2012-BP-09702BP

PATIENT
  Sex: Male
  Weight: 88 kg

DRUGS (11)
  1. FERROUS SULFATE TAB [Concomitant]
     Indication: ANAEMIA
     Route: 048
  2. GABAPENTIN [Concomitant]
     Route: 048
     Dates: start: 20110401
  3. ASPIRIN [Concomitant]
  4. COMBIVENT [Concomitant]
     Dates: start: 20120201
  5. SPIRIVA [Concomitant]
     Dates: start: 20120201
  6. ALPRAZOLAM [Concomitant]
     Route: 048
  7. SIMVASTATIN [Concomitant]
     Indication: BLOOD CHOLESTEROL INCREASED
     Route: 048
     Dates: start: 20090101
  8. CYMBALTA [Concomitant]
     Dosage: 90 MG
     Route: 048
  9. PRADAXA [Suspect]
     Indication: ATRIAL FIBRILLATION
     Dosage: 300 MG
     Route: 048
     Dates: start: 20110601, end: 20120402
  10. AMBIEN [Concomitant]
     Dosage: 10 MG
     Route: 048
  11. GLIPIZIDE [Concomitant]
     Indication: DIABETES MELLITUS

REACTIONS (2)
  - CEREBROVASCULAR ACCIDENT [None]
  - ANAEMIA [None]
